FAERS Safety Report 5795015-5 (Version None)
Quarter: 2008Q2

REPORT INFORMATION
  Report Type: 
  Country: None (occurrence: None)
  Receive Date: 20080630
  Receipt Date: 20080407
  Transmission Date: 20081010
  Serious: No
  Sender: FDA-Public Use
  Company Number: US-BRISTOL-MYERS SQUIBB COMPANY-14100416

PATIENT
  Age: 40 Year
  Sex: Female

DRUGS (4)
  1. ORENCIA [Suspect]
     Indication: PSORIATIC ARTHROPATHY
     Dosage: 3 DOSAGE FORM = 3 VIALS. 31JUL06 (#1), 16AUG06 (#2), 30AUG06 (#3), 28SEP06 (#4).
     Route: 042
     Dates: start: 20060731, end: 20060928
  2. METHOTREXATE [Concomitant]
  3. ACETAMINOPHEN W/ PROPOXYPHENE HCL [Concomitant]
  4. ULTRACET [Concomitant]
     Indication: PAIN

REACTIONS (2)
  - DRUG INEFFECTIVE [None]
  - HYPERSENSITIVITY [None]
